FAERS Safety Report 4754227-X (Version None)
Quarter: 2005Q2

REPORT INFORMATION
  Report Type: 
  Country: None (occurrence: None)
  Receive Date: 20050525
  Receipt Date: 20050525
  Transmission Date: 20051028
  Serious: No
  Sender: FDA-Public Use
  Company Number: None

PATIENT
  Age: 31 Year
  Sex: Female
  Weight: 60.782 kg

DRUGS (2)
  1. ORTHO-NOVUM 7/7/7-21 [Suspect]
     Indication: CONTRACEPTION
     Dosage: 1 PO Q DAY
     Route: 048
     Dates: start: 20050401
  2. ORTHO-NOVUM 7/7/7-21 [Suspect]
     Indication: CONTRACEPTION
     Dosage: 1 PO Q DAY
     Route: 048
     Dates: start: 20050701

REACTIONS (1)
  - METRORRHAGIA [None]
